FAERS Safety Report 15921326 (Version 1)
Quarter: 2019Q1

REPORT INFORMATION
  Report Type: Spontaneous
  Country: DE (occurrence: DE)
  Receive Date: 20190205
  Receipt Date: 20190205
  Transmission Date: 20190417
  Serious: Yes (Other)
  Sender: FDA-Public Use
  Company Number: DE-ROCHE-2258702

PATIENT
  Sex: Male

DRUGS (8)
  1. ADUMBRAN [Concomitant]
     Active Substance: OXAZEPAM
  2. ENCEPHABOL [Concomitant]
     Active Substance: PYRITINOL HYDROCHLORIDE
  3. HALOPERIDOL. [Concomitant]
     Active Substance: HALOPERIDOL
  4. NEUROCIL (GERMANY) [Concomitant]
  5. TRUXAL [Concomitant]
     Active Substance: CHLORPROTHIXENE
  6. SPEDA [Concomitant]
  7. ATOSIL [Concomitant]
     Active Substance: PROMETHAZINE HYDROCHLORIDE
  8. VALIUM [Suspect]
     Active Substance: DIAZEPAM
     Indication: PRODUCT USED FOR UNKNOWN INDICATION
     Route: 048
     Dates: start: 1969, end: 1974

REACTIONS (4)
  - Movement disorder [Unknown]
  - Feeling abnormal [Unknown]
  - Brain injury [Unknown]
  - Post-traumatic stress disorder [Unknown]
